FAERS Safety Report 5877923-X (Version None)
Quarter: 2008Q3

REPORT INFORMATION
  Report Type: 
  Country: None (occurrence: None)
  Receive Date: 20080911
  Receipt Date: 20080903
  Transmission Date: 20090109
  Serious: Yes (Other)
  Sender: FDA-Public Use
  Company Number: B0494857A

PATIENT
  Age: 31 Year
  Sex: Female

DRUGS (3)
  1. IMIJECT [Suspect]
     Indication: CLUSTER HEADACHE
     Route: 058
  2. ISOPTIN [Suspect]
     Indication: CLUSTER HEADACHE
     Dosage: 240MG THREE TIMES PER DAY
     Route: 048
  3. CORTICOIDS [Concomitant]
     Indication: CLUSTER HEADACHE
     Route: 065

REACTIONS (7)
  - DRUG ABUSE [None]
  - DRUG EXPOSURE DURING PREGNANCY [None]
  - LIVE BIRTH [None]
  - OLIGOHYDRAMNIOS [None]
  - PLACENTAL INFARCTION [None]
  - PREMATURE BABY [None]
  - URINARY TRACT INFECTION [None]
